FAERS Safety Report 24878569 (Version 1)
Quarter: 2025Q1

REPORT INFORMATION
  Report Type: Spontaneous
  Country: FR (occurrence: FR)
  Receive Date: 20250123
  Receipt Date: 20250123
  Transmission Date: 20250409
  Serious: Yes (Other)
  Sender: PFIZER
  Company Number: None

PATIENT
  Age: 66 Year
  Sex: Female

DRUGS (6)
  1. TOVIAZ [Suspect]
     Active Substance: FESOTERODINE FUMARATE
     Indication: Hypertonic bladder
     Dosage: 4 MG, 1X/DAY
     Route: 048
     Dates: start: 202212, end: 202307
  2. TOVIAZ [Suspect]
     Active Substance: FESOTERODINE FUMARATE
     Dosage: 8 MG, 1X/DAY
     Route: 048
     Dates: start: 202307
  3. TYSABRI [Suspect]
     Active Substance: NATALIZUMAB
     Indication: Multiple sclerosis relapse
     Route: 042
     Dates: start: 20200313
  4. DESOGESTREL [Concomitant]
     Active Substance: DESOGESTREL
     Indication: Contraception
     Dosage: 75 UG, 1X/DAY
     Route: 048
     Dates: start: 2022
  5. PAROXETINE HYDROCHLORIDE [Concomitant]
     Active Substance: PAROXETINE HYDROCHLORIDE
     Dosage: 20 MG, 1X/DAY
     Route: 048
  6. BACLOFEN [Concomitant]
     Active Substance: BACLOFEN
     Dosage: 10-0-20 MG
     Route: 048

REACTIONS (2)
  - Pyelonephritis acute [Not Recovered/Not Resolved]
  - Cystitis [Not Recovered/Not Resolved]

NARRATIVE: CASE EVENT DATE: 20220401
